FAERS Safety Report 10589855 (Version 1)
Quarter: 2014Q4

REPORT INFORMATION
  Report Type: Spontaneous
  Country: US (occurrence: None)
  Receive Date: 20141117
  Receipt Date: 20141117
  Transmission Date: 20150529
  Serious: Yes (Disabling)
  Sender: FDA-Public Use
  Company Number: None

PATIENT
  Age: 54 Year
  Sex: Female
  Weight: 108.86 kg

DRUGS (2)
  1. OXYCODONE ACETAMINOPHEN [Suspect]
     Active Substance: ACETAMINOPHEN\OXYCODONE HYDROCHLORIDE
     Indication: PAIN
     Dosage: 1 TABLET THREE TIMES DAILY TAKEN BY MOUTH
     Route: 048
     Dates: start: 20141103, end: 20141114
  2. OXYCODONE ACETAMINOPHEN [Suspect]
     Active Substance: ACETAMINOPHEN\OXYCODONE HYDROCHLORIDE
     Dosage: 1 TABLET THREE TIMES DAILY TAKEN BY MOUTH
     Route: 048
     Dates: start: 20141103, end: 20141114

REACTIONS (7)
  - Drug effect decreased [None]
  - Abdominal distension [None]
  - Headache [None]
  - Weight decreased [None]
  - Blood pressure increased [None]
  - Muscle spasms [None]
  - Diarrhoea [None]

NARRATIVE: CASE EVENT DATE: 20141111
